FAERS Safety Report 4912517-1 (Version None)
Quarter: 2006Q1

REPORT INFORMATION
  Report Type: 
  Country: None (occurrence: None)
  Receive Date: 20060215
  Receipt Date: 20050607
  Transmission Date: 20060701
  Serious: No
  Sender: FDA-Public Use
  Company Number: US-GLAXOSMITHKLINE-A0561626A

PATIENT
  Age: 73 Year
  Sex: Female

DRUGS (9)
  1. VALTREX [Suspect]
     Route: 048
     Dates: start: 20050101, end: 20050401
  2. ACYCLOVIR SODIUM [Suspect]
     Route: 048
     Dates: start: 20041201
  3. FAMVIR [Suspect]
     Route: 048
  4. IMIPRAMINE [Concomitant]
  5. DILTIAZEM HCL [Concomitant]
  6. LIPITOR [Concomitant]
  7. FOSAMAX [Concomitant]
  8. FERROUS SULFATE TAB [Concomitant]
  9. CALCIUM SUPPLEMENT [Concomitant]
     Route: 065

REACTIONS (2)
  - CONTUSION [None]
  - PIGMENTATION DISORDER [None]
